FAERS Safety Report 11112041 (Version 1)
Quarter: 2015Q2

REPORT INFORMATION
  Report Type: Spontaneous
  Country: US (occurrence: None)
  Receive Date: 20150513
  Receipt Date: 20150513
  Transmission Date: 20150821
  Serious: Yes (Other)
  Sender: FDA-Public Use
  Company Number: None

PATIENT
  Age: 25 Year
  Sex: Male
  Weight: 61.24 kg

DRUGS (5)
  1. ESZOPICLONE. [Concomitant]
     Active Substance: ESZOPICLONE
  2. OMEPRAZOLE. [Concomitant]
     Active Substance: OMEPRAZOLE
  3. AMBIEN [Suspect]
     Active Substance: ZOLPIDEM TARTRATE
     Indication: INSOMNIA
     Route: 048
  4. BUPROPION [Concomitant]
     Active Substance: BUPROPION
  5. TRAMADOL [Concomitant]
     Active Substance: TRAMADOL

REACTIONS (4)
  - Therapeutic response changed [None]
  - Sleep disorder [None]
  - Product substitution issue [None]
  - Product quality issue [None]

NARRATIVE: CASE EVENT DATE: 20140820
